FAERS Safety Report 8887116 (Version 1)
Quarter: 2012Q4

REPORT INFORMATION
  Report Type: 
  Country: US (occurrence: US)
  Receive Date: 20121105
  Receipt Date: 20121105
  Transmission Date: 20130627
  Serious: Yes (Other)
  Sender: FDA-Public Use
  Company Number: US-FRI-1000039338

PATIENT
  Age: 35 Year
  Sex: Female
  Weight: 95 kg

DRUGS (4)
  1. VIIBRYD [Suspect]
     Indication: DEPRESSION
     Dosage: 10 mg
     Route: 048
     Dates: start: 20120626, end: 20120702
  2. VIIBRYD [Suspect]
     Dosage: 20 mg
     Route: 048
     Dates: start: 20120703, end: 20120709
  3. VIIBRYD [Suspect]
     Indication: DEPRESSION
     Dosage: 40 mg
     Route: 048
     Dates: start: 20120710, end: 20120718
  4. WELLBUTRIN [Concomitant]
     Indication: DEPRESSION
     Dosage: 450 MG

REACTIONS (1)
  - Electrocardiogram QT prolonged [Recovered/Resolved]
